FAERS Safety Report 21420152 (Version 2)
Quarter: 2022Q4

REPORT INFORMATION
  Report Type: Spontaneous
  Country: US (occurrence: US)
  Receive Date: 20221007
  Receipt Date: 20221014
  Transmission Date: 20230112
  Serious: No
  Sender: FDA-Public Use
  Company Number: US-ALEMBIC PHARMACUETICALS LIMITED-2022SCAL000426

PATIENT

DRUGS (3)
  1. DESVENLAFAXINE SUCCINATE [Suspect]
     Active Substance: DESVENLAFAXINE SUCCINATE
     Indication: Depression
     Dosage: 25 MG, QD
     Route: 065
  2. CYCLOBENZAPRINE [Concomitant]
     Active Substance: CYCLOBENZAPRINE
     Indication: Muscle relaxant therapy
     Dosage: 5 MG
     Route: 065
  3. TRAVACOR [Concomitant]
     Indication: Depression
     Dosage: UNK
     Route: 065

REACTIONS (11)
  - Temporomandibular joint syndrome [Unknown]
  - Tongue biting [Unknown]
  - Dyskinesia [Unknown]
  - Dysarthria [Unknown]
  - Migraine [Unknown]
  - Drug ineffective [Unknown]
  - Anger [Unknown]
  - Mania [Unknown]
  - Psychomotor hyperactivity [Unknown]
  - Anxiety [Unknown]
  - Bruxism [Unknown]
